FAERS Safety Report 9143278 (Version 1)
Quarter: 2013Q1

REPORT INFORMATION
  Report Type: Spontaneous
  Country: US (occurrence: US)
  Receive Date: 20130306
  Receipt Date: 20130306
  Transmission Date: 20140127
  Serious: No
  Sender: FDA-Public Use
  Company Number: US-ENDO PHARMACEUTICALS INC.-OPER20120052

PATIENT
  Sex: Male
  Weight: 88.53 kg

DRUGS (2)
  1. OPANA ER 20MG [Suspect]
     Indication: BACK PAIN
     Route: 048
     Dates: start: 20110126
  2. OPANA ER 20MG [Suspect]
     Indication: FIBROMYALGIA

REACTIONS (3)
  - Thyroid neoplasm [Unknown]
  - Memory impairment [Unknown]
  - Drug effect decreased [Unknown]
